FAERS Safety Report 7014142-8 (Version None)
Quarter: 2010Q3

REPORT INFORMATION
  Report Type: 
  Country: None (occurrence: None)
  Receive Date: 20100927
  Receipt Date: 20100921
  Transmission Date: 20110219
  Serious: Yes (Life-Threatening, Other)
  Sender: FDA-Public Use
  Company Number: PHHY2010BR62957

PATIENT
  Sex: Female
  Weight: 66 kg

DRUGS (5)
  1. CODATEN [Suspect]
     Indication: TENDONITIS
     Dosage: 50MG, 1 TABLET EVERY 8 HOURS
     Route: 048
     Dates: start: 20100920
  2. AAS DM [Concomitant]
     Indication: BREAST MASS
     Dosage: 1 TABLET A DAY
  3. PANTOPAZ [Concomitant]
     Indication: GASTROOESOPHAGEAL REFLUX DISEASE
     Dosage: 20 MG 1 TABLET A DAY
  4. LESCOL XL [Concomitant]
     Indication: BLOOD CHOLESTEROL INCREASED
     Dosage: 80 MG 1 TABLET A DAY
     Route: 048
  5. INDAPEN [Concomitant]
     Indication: HYPERTENSION
     Dosage: 5 MG, 1 TABLET IN THE MORNING
     Route: 048

REACTIONS (8)
  - ACTIVITIES OF DAILY LIVING IMPAIRED [None]
  - BLOOD PRESSURE INCREASED [None]
  - DIZZINESS [None]
  - EAR PAIN [None]
  - FEELING ABNORMAL [None]
  - HEAD DISCOMFORT [None]
  - HEADACHE [None]
  - VISUAL IMPAIRMENT [None]
